FAERS Safety Report 15360433 (Version 2)
Quarter: 2018Q4

REPORT INFORMATION
  Report Type: Spontaneous
  Country: US (occurrence: US)
  Receive Date: 20180907
  Receipt Date: 20181002
  Transmission Date: 20190204
  Serious: No
  Sender: FDA-Public Use
  Company Number: US-PFIZER INC-2018298130

PATIENT
  Age: 66 Year
  Sex: Male

DRUGS (2)
  1. VFEND [Suspect]
     Active Substance: VORICONAZOLE
     Dosage: 400 MG, 2X/DAY (2-200MG TWICE DAILY)
  2. VFEND [Suspect]
     Active Substance: VORICONAZOLE
     Indication: SEPSIS
     Dosage: 200 MG, UNK

REACTIONS (1)
  - No adverse event [Unknown]

NARRATIVE: CASE EVENT DATE: 20180720
